FAERS Safety Report 9642850 (Version 2)
Quarter: 2013Q4

REPORT INFORMATION
  Report Type: Spontaneous
  Country: JP (occurrence: JP)
  Receive Date: 20131024
  Receipt Date: 20131203
  Transmission Date: 20140711
  Serious: No
  Sender: FDA-Public Use
  Company Number: PHHY2013JP119043

PATIENT
  Sex: 0

DRUGS (2)
  1. RIVASTIGMIN [Suspect]
     Indication: DEMENTIA ALZHEIMER^S TYPE
     Dosage: 18 MG, QD
     Route: 062
  2. RIVASTIGMIN [Suspect]
     Dosage: 18 MG PATCH (CUT INTO HALVES)
     Route: 062

REACTIONS (1)
  - Wrong technique in drug usage process [Unknown]
